FAERS Safety Report 18425566 (Version 1)
Quarter: 2020Q4

REPORT INFORMATION
  Report Type: Spontaneous
  Country: US (occurrence: US)
  Receive Date: 20201026
  Receipt Date: 20201026
  Transmission Date: 20210114
  Serious: Yes (Hospitalization)
  Sender: FDA-Public Use
  Company Number: None

PATIENT
  Age: 45 Year
  Sex: Female

DRUGS (18)
  1. GLYCOPYRROL [Concomitant]
  2. SPIRONOLACT [Concomitant]
     Active Substance: SPIRONOLACTONE
  3. METFORMIN [Concomitant]
     Active Substance: METFORMIN HYDROCHLORIDE
  4. PLAQUENIL [Concomitant]
     Active Substance: HYDROXYCHLOROQUINE SULFATE
  5. WELLBUTRIN [Concomitant]
     Active Substance: BUPROPION HYDROCHLORIDE
  6. WOMENS DAILY CHW [Concomitant]
  7. FLUOCIN ACET [Concomitant]
  8. VITAMIN D3 [Concomitant]
     Active Substance: CHOLECALCIFEROL
  9. CYMBALTA [Concomitant]
     Active Substance: DULOXETINE HYDROCHLORIDE
  10. HAIR SKIN NAILS [Concomitant]
  11. GABAPENTIN. [Concomitant]
     Active Substance: GABAPENTIN
  12. MOMETASONE [Concomitant]
     Active Substance: MOMETASONE
  13. TRIAMCINOLON OIN [Concomitant]
  14. METOPROL TAR [Concomitant]
  15. COSENTYX [Suspect]
     Active Substance: SECUKINUMAB
     Indication: PSORIASIS
     Route: 058
     Dates: start: 20190219
  16. ASPIRIN. [Concomitant]
     Active Substance: ASPIRIN
  17. LIDOCAINE. [Concomitant]
     Active Substance: LIDOCAINE
  18. SYNTHROID [Concomitant]
     Active Substance: LEVOTHYROXINE SODIUM

REACTIONS (2)
  - Hypertension [None]
  - Systemic lupus erythematosus [None]

NARRATIVE: CASE EVENT DATE: 20201022
